FAERS Safety Report 22978260 (Version 2)
Quarter: 2024Q1

REPORT INFORMATION
  Report Type: Report from Study
  Country: US (occurrence: US)
  Receive Date: 20230925
  Receipt Date: 20240129
  Transmission Date: 20240410
  Serious: Yes (Hospitalization)
  Sender: FDA-Public Use
  Company Number: US-BAUSCH-BL-2023-007930

PATIENT
  Age: 33 Year
  Sex: Male

DRUGS (1)
  1. XIFAXAN [Suspect]
     Active Substance: RIFAXIMIN
     Indication: Hepatic encephalopathy
     Route: 048
     Dates: start: 20230303

REACTIONS (9)
  - Portal shunt [Unknown]
  - Ammonia increased [Unknown]
  - Visual impairment [Unknown]
  - Confusional state [Unknown]
  - Ascites [Unknown]
  - Pyrexia [Unknown]
  - Fatigue [Unknown]
  - Constipation [Unknown]
  - Headache [Unknown]

NARRATIVE: CASE EVENT DATE: 20230515
